FAERS Safety Report 15208014 (Version 1)
Quarter: 2018Q3

REPORT INFORMATION
  Report Type: Spontaneous
  Country: TR (occurrence: TR)
  Receive Date: 20180727
  Receipt Date: 20180727
  Transmission Date: 20181010
  Serious: Yes (Other)
  Sender: FDA-Public Use
  Company Number: TR-PFIZER INC-2018300459

PATIENT
  Sex: Male

DRUGS (1)
  1. LYRICA [Suspect]
     Active Substance: PREGABALIN

REACTIONS (6)
  - Hyperhidrosis [Unknown]
  - Asthenia [Unknown]
  - Intentional product misuse [Unknown]
  - Drug dependence [Unknown]
  - Depressed mood [Unknown]
  - Insomnia [Unknown]
